FAERS Safety Report 7570453-9 (Version None)
Quarter: 2011Q2

REPORT INFORMATION
  Report Type: 
  Country: None (occurrence: None)
  Receive Date: 20110624
  Receipt Date: 20110302
  Transmission Date: 20111010
  Serious: No
  Sender: FDA-Public Use
  Company Number: US-ALLERGAN-1102988US

PATIENT
  Age: 45 Year
  Sex: Female

DRUGS (1)
  1. LATISSE [Suspect]
     Indication: HAIR TEXTURE ABNORMAL
     Dosage: 1 GTT, QHS
     Route: 061
     Dates: start: 20091001

REACTIONS (3)
  - SKIN IRRITATION [None]
  - MADAROSIS [None]
  - EYE IRRITATION [None]
